FAERS Safety Report 5489214-X (Version None)
Quarter: 2007Q4

REPORT INFORMATION
  Report Type: 
  Country: None (occurrence: None)
  Receive Date: 20071003
  Receipt Date: 20071003
  Transmission Date: 20080405
  Serious: Yes (Hospitalization)
  Sender: FDA-Public Use
  Company Number: CERZ-11908

PATIENT
  Age: 67 Year
  Sex: Female
  Weight: 67.2 kg

DRUGS (1)
  1. CEREZYME [Suspect]
     Indication: GAUCHER'S DISEASE
     Dosage: 45 U/KG Q2WKS IV
     Route: 042
     Dates: start: 20040119

REACTIONS (1)
  - CEREBROVASCULAR ACCIDENT [None]
